FAERS Safety Report 6497150-5 (Version None)
Quarter: 2009Q4

REPORT INFORMATION
  Report Type: 
  Country: None (occurrence: None)
  Receive Date: 20091215
  Receipt Date: 20090415
  Transmission Date: 20100525
  Serious: No
  Sender: FDA-Public Use
  Company Number: A0778946A

PATIENT
  Age: 83 Year
  Sex: Male

DRUGS (3)
  1. AVODART [Suspect]
     Dosage: .5MG PER DAY
     Route: 048
     Dates: start: 20090406
  2. FLOMAX [Concomitant]
  3. BLOOD PRESSURE MEDICATION [Concomitant]

REACTIONS (1)
  - CHROMATURIA [None]
